FAERS Safety Report 8458774-9 (Version None)
Quarter: 2012Q2

REPORT INFORMATION
  Report Type: 
  Country: None (occurrence: None)
  Receive Date: 20120622
  Receipt Date: 20120615
  Transmission Date: 20120825
  Serious: Yes (Hospitalization)
  Sender: FDA-Public Use
  Company Number: IT-UCBSA-059840

PATIENT
  Age: 59 Year
  Sex: Male

DRUGS (2)
  1. KEPPRA [Suspect]
     Indication: CONVULSION
     Dosage: DRUG STRENGTH: 1000MG; TOTAL DAILY DOSE:2000MG
     Route: 048
     Dates: start: 20120401, end: 20120605
  2. PHENYTOIN SODIUM [Suspect]
     Indication: CONVULSION
     Dosage: DRUG STRENGTH:100MG; TOTAL DAILY DOSE: 300MG
     Route: 048
     Dates: start: 20120514, end: 20120530

REACTIONS (2)
  - RASH PAPULAR [None]
  - PYREXIA [None]
